FAERS Safety Report 11251338 (Version 1)
Quarter: 2015Q3

REPORT INFORMATION
  Report Type: Spontaneous
  Country: US (occurrence: US)
  Receive Date: 20150708
  Receipt Date: 20150708
  Transmission Date: 20151125
  Serious: No
  Sender: FDA-Public Use
  Company Number: US-ELI_LILLY_AND_COMPANY-US201111008936

PATIENT
  Age: 70 Year
  Sex: Female

DRUGS (3)
  1. XELODA [Concomitant]
     Active Substance: CAPECITABINE
  2. ECTIVA [Concomitant]
  3. GEMZAR [Suspect]
     Active Substance: GEMCITABINE HYDROCHLORIDE
     Indication: BREAST CANCER METASTATIC
     Dosage: UNK, WEEKLY (1/W)
     Dates: start: 20111019

REACTIONS (8)
  - Vision blurred [Unknown]
  - Platelet count decreased [Unknown]
  - Eyelid function disorder [Unknown]
  - VIIth nerve paralysis [Unknown]
  - Eye disorder [Unknown]
  - Drug dose omission [Recovered/Resolved]
  - Drooling [Unknown]
  - VIIth nerve paralysis [Unknown]

NARRATIVE: CASE EVENT DATE: 201110
